FAERS Safety Report 17107735 (Version 1)
Quarter: 2019Q4

REPORT INFORMATION
  Report Type: Spontaneous
  Country: US (occurrence: US)
  Receive Date: 20191204
  Receipt Date: 20191204
  Transmission Date: 20200122
  Serious: Yes (Other)
  Sender: FDA-Public Use
  Company Number: US-SA-2019SA334318

PATIENT
  Sex: Female

DRUGS (1)
  1. TROLAMINE SALICYLATE. [Suspect]
     Active Substance: TROLAMINE SALICYLATE
     Indication: ARTHRITIS

REACTIONS (1)
  - Deafness [Unknown]
